FAERS Safety Report 7343386-0 (Version None)
Quarter: 2011Q1

REPORT INFORMATION
  Report Type: 
  Country: None (occurrence: None)
  Receive Date: 20110308
  Receipt Date: 20110308
  Transmission Date: 20110831
  Serious: Yes (Hospitalization)
  Sender: FDA-Public Use
  Company Number: None

PATIENT
  Sex: Female
  Weight: 90 kg

DRUGS (2)
  1. VALPROIC ACID [Suspect]
     Dosage: 500 MG TID PO
     Route: 048
     Dates: start: 20110224, end: 20110303
  2. HYDRALAZINE HCL [Suspect]
     Dosage: 50 MG QID PO
     Route: 048
     Dates: start: 20110224, end: 20110303

REACTIONS (4)
  - SMALL INTESTINAL OBSTRUCTION [None]
  - ASTHENIA [None]
  - DEHYDRATION [None]
  - ABDOMINAL HERNIA OBSTRUCTIVE [None]
